FAERS Safety Report 8385871-9 (Version None)
Quarter: 2012Q2

REPORT INFORMATION
  Report Type: 
  Country: None (occurrence: None)
  Receive Date: 20120525
  Receipt Date: 20120522
  Transmission Date: 20120825
  Serious: Yes (Hospitalization)
  Sender: FDA-Public Use
  Company Number: BR-US-EMD SERONO, INC.-7131656

PATIENT
  Sex: Female

DRUGS (4)
  1. VONAL [Concomitant]
     Indication: PRODUCT USED FOR UNKNOWN INDICATION
  2. CLORANA [Concomitant]
     Indication: PRODUCT USED FOR UNKNOWN INDICATION
  3. REBIF [Suspect]
     Indication: RELAPSING-REMITTING MULTIPLE SCLEROSIS
     Route: 058
     Dates: start: 20090909
  4. LOSARTAN POTASSIUM [Concomitant]
     Indication: PRODUCT USED FOR UNKNOWN INDICATION

REACTIONS (2)
  - MULTIPLE SCLEROSIS RELAPSE [None]
  - LABORATORY TEST ABNORMAL [None]
